FAERS Safety Report 7579274-4 (Version None)
Quarter: 2011Q2

REPORT INFORMATION
  Report Type: 
  Country: None (occurrence: None)
  Receive Date: 20110628
  Receipt Date: 20110611
  Transmission Date: 20111010
  Serious: No
  Sender: FDA-Public Use
  Company Number: BE-ABBOTT-11P-013-0731972-00

PATIENT
  Age: 48 Year
  Sex: Female
  Weight: 67 kg

DRUGS (6)
  1. TENOFOVIR DISOPROXIL FUMARATE [Concomitant]
     Indication: HIV INFECTION
  2. DOXYCYCLINE [Concomitant]
     Indication: MALARIA PROPHYLAXIS
  3. RITONAVIR [Suspect]
     Indication: HIV INFECTION
  4. ATAZANAVIR [Concomitant]
     Indication: HIV INFECTION
  5. LAMIVUDINE [Concomitant]
     Indication: HIV INFECTION
  6. MEFLOQUINE HYDROCHLORIDE [Interacting]
     Indication: MALARIA PROPHYLAXIS

REACTIONS (7)
  - NEUROTOXICITY [None]
  - ANXIETY [None]
  - DRUG INTERACTION [None]
  - PALPITATIONS [None]
  - DIZZINESS [None]
  - ASTHENIA [None]
  - DYSPNOEA [None]
